FAERS Safety Report 5169665-3 (Version None)
Quarter: 2006Q4

REPORT INFORMATION
  Report Type: 
  Country: None (occurrence: None)
  Receive Date: 20061212
  Receipt Date: 20061018
  Transmission Date: 20070319
  Serious: Yes (Hospitalization, Other)
  Sender: FDA-Public Use
  Company Number: 2006AP05002

PATIENT
  Age: 5356 Day
  Sex: Female
  Weight: 54 kg

DRUGS (19)
  1. DIPRIVAN [Suspect]
     Indication: SEDATION
     Route: 042
     Dates: start: 20040430, end: 20040430
  2. DIPRIVAN [Suspect]
     Indication: INDUCTION OF ANAESTHESIA
     Route: 042
     Dates: start: 20040430, end: 20040430
  3. DIPRIVAN [Suspect]
     Indication: MAINTENANCE OF ANAESTHESIA
     Route: 042
     Dates: start: 20040430, end: 20040430
  4. DIPRIVAN [Suspect]
     Dosage: INDUCED AT 4 MG/KG/HR
     Route: 042
     Dates: start: 20040430, end: 20040430
  5. DIPRIVAN [Suspect]
     Dosage: INDUCED AT 4 MG/KG/HR
     Route: 042
     Dates: start: 20040430, end: 20040430
  6. DIPRIVAN [Suspect]
     Dosage: INDUCED AT 4 MG/KG/HR
     Route: 042
     Dates: start: 20040430, end: 20040430
  7. PRIMPERAN TAB [Concomitant]
     Indication: VOMITING
     Route: 042
     Dates: start: 20040430, end: 20040430
  8. PENTAZOCINE LACTATE [Concomitant]
     Indication: ANALGESIC THERAPY
     Route: 042
     Dates: start: 20040430, end: 20040430
  9. HERBESSER [Concomitant]
     Indication: SINUS TACHYCARDIA
     Route: 042
     Dates: start: 20040430, end: 20040501
  10. PERDIPINE [Concomitant]
     Indication: BLOOD PRESSURE INCREASED
     Route: 042
     Dates: start: 20040430, end: 20040516
  11. PERDIPINE [Concomitant]
     Indication: CEREBRAL VASOCONSTRICTION
     Route: 042
     Dates: start: 20040430, end: 20040516
  12. FENTANEST [Concomitant]
     Indication: ANALGESIC THERAPY
     Route: 042
     Dates: start: 20040430, end: 20040430
  13. MUSCULAX [Concomitant]
     Indication: HYPOTONIA
     Route: 042
     Dates: start: 20040430, end: 20040430
  14. SEVOFLURANE [Concomitant]
     Indication: GENERAL ANAESTHESIA
     Route: 055
     Dates: start: 20040430, end: 20040430
  15. MANNIGEN [Concomitant]
     Indication: BRAIN OEDEMA
     Route: 042
     Dates: start: 20040430, end: 20040430
  16. THIOPENTAL SODIUM [Concomitant]
     Indication: BRAIN OEDEMA
     Route: 042
     Dates: start: 20040430, end: 20040430
  17. SOLU-MEDROL [Concomitant]
     Indication: BRAIN OEDEMA
     Route: 042
     Dates: start: 20040430, end: 20040430
  18. TRANSAMIN [Concomitant]
     Indication: BLEEDING TIME PROLONGED
     Route: 041
     Dates: start: 20040430, end: 20040501
  19. PANSPORIN [Concomitant]
     Indication: INFECTION PROPHYLAXIS
     Route: 041
     Dates: start: 20040430, end: 20040506

REACTIONS (11)
  - ASPARTATE AMINOTRANSFERASE INCREASED [None]
  - BLOOD CREATINE PHOSPHOKINASE INCREASED [None]
  - BLOOD LACTATE DEHYDROGENASE DECREASED [None]
  - DELAYED RECOVERY FROM ANAESTHESIA [None]
  - GLASGOW COMA SCALE ABNORMAL [None]
  - HYPERKALAEMIA [None]
  - HYPERTHERMIA MALIGNANT [None]
  - MYOGLOBINURIA [None]
  - PYREXIA [None]
  - REFUSAL OF TREATMENT BY PATIENT [None]
  - RHABDOMYOLYSIS [None]
